FAERS Safety Report 13396837 (Version 2)
Quarter: 2017Q2

REPORT INFORMATION
  Report Type: Spontaneous
  Country: US (occurrence: US)
  Receive Date: 20170403
  Receipt Date: 20170630
  Transmission Date: 20170830
  Serious: Yes (Hospitalization, Other)
  Sender: FDA-Public Use
  Company Number: US-APOTEX-2017AP009079

PATIENT
  Age: 63 Year
  Sex: Male

DRUGS (1)
  1. FENTANYL TRANSDERMAL SYSTEM [Suspect]
     Active Substance: FENTANYL
     Indication: PAIN
     Dosage: 100 ?G, UNK
     Route: 062
     Dates: start: 201610, end: 20170217

REACTIONS (4)
  - Skin exfoliation [Unknown]
  - Product adhesion issue [Unknown]
  - Enterococcal infection [Unknown]
  - Skin lesion [Unknown]

NARRATIVE: CASE EVENT DATE: 201702
